FAERS Safety Report 7677493-X (Version None)
Quarter: 2011Q3

REPORT INFORMATION
  Report Type: 
  Country: None (occurrence: None)
  Receive Date: 20110811
  Receipt Date: 20110802
  Transmission Date: 20111222
  Serious: Yes (Hospitalization, Disabling)
  Sender: FDA-Public Use
  Company Number: CA-JNJFOC-20110802742

PATIENT
  Sex: Female
  Weight: 53.6 kg

DRUGS (3)
  1. PREDNISONE [Concomitant]
  2. REMICADE [Suspect]
     Indication: CROHN'S DISEASE
     Route: 042
     Dates: start: 20110321
  3. PERCOCET [Concomitant]

REACTIONS (2)
  - FOOT FRACTURE [None]
  - CATARACT [None]
